FAERS Safety Report 8624040-1 (Version None)
Quarter: 2012Q3

REPORT INFORMATION
  Report Type: 
  Country: None (occurrence: None)
  Receive Date: 20120827
  Receipt Date: 20120817
  Transmission Date: 20120928
  Serious: Yes (Hospitalization)
  Sender: FDA-Public Use
  Company Number: AU-ASTRAZENECA-2012SE41630

PATIENT
  Age: 60 Year
  Sex: Male
  Weight: 64 kg

DRUGS (5)
  1. NEXIUM [Concomitant]
     Route: 048
  2. SEROQUEL [Suspect]
     Route: 048
  3. CLARITIN [Interacting]
     Route: 048
  4. AVODART [Concomitant]
     Route: 048
  5. LIPITOR [Concomitant]
     Route: 048

REACTIONS (2)
  - DRUG INTERACTION [None]
  - TACHYCARDIA [None]
